FAERS Safety Report 19665758 (Version 1)
Quarter: 2021Q3

REPORT INFORMATION
  Report Type: Spontaneous
  Country: US (occurrence: IN)
  Receive Date: 20210806
  Receipt Date: 20210806
  Transmission Date: 20211014
  Serious: Yes (Other)
  Sender: FDA-Public Use
  Company Number: US-ACCORD-220450

PATIENT
  Age: 37 Year
  Sex: Female

DRUGS (7)
  1. LUPRON [Suspect]
     Active Substance: LEUPROLIDE ACETATE
     Indication: BREAST CANCER
     Dosage: 6 CYCLE
     Dates: start: 201909
  2. HERCEPTIN [Suspect]
     Active Substance: TRASTUZUMAB
     Indication: BREAST CANCER
     Dosage: 6 CYCLE
     Dates: start: 20190206, end: 20190605
  3. PARAPLATIN [Suspect]
     Active Substance: CARBOPLATIN
     Indication: BREAST CANCER
     Dosage: 6 CYCLE
     Route: 042
     Dates: start: 20190206, end: 20190605
  4. PERTUZUMAB. [Suspect]
     Active Substance: PERTUZUMAB
     Indication: BREAST CANCER
     Dosage: 6 CYCLE
     Dates: start: 20190206, end: 20190505
  5. TAMOXIFEN [Suspect]
     Active Substance: TAMOXIFEN
     Indication: BREAST CANCER
     Dosage: 6 CYCLE
     Dates: start: 20190829
  6. DOCETAXEL ACCORD [Suspect]
     Active Substance: DOCETAXEL
     Indication: CHEMOTHERAPY
     Route: 042
     Dates: start: 20190206, end: 20190605
  7. NEULASTA [Suspect]
     Active Substance: PEGFILGRASTIM
     Indication: BREAST CANCER
     Dosage: ONCE
     Route: 058
     Dates: start: 20190206

REACTIONS (6)
  - Hypokalaemia [Recovered/Resolved]
  - Skin discolouration [Unknown]
  - Oedema peripheral [Unknown]
  - Diarrhoea [Unknown]
  - Dacryostenosis acquired [Unknown]
  - Nausea [Unknown]
